FAERS Safety Report 6366745-1 (Version None)
Quarter: 2009Q3

REPORT INFORMATION
  Report Type: 
  Country: None (occurrence: None)
  Receive Date: 20090915
  Receipt Date: 20090908
  Transmission Date: 20100115
  Serious: Yes (Death, Hospitalization)
  Sender: FDA-Public Use
  Company Number: 230021J09AUS

PATIENT
  Sex: Female

DRUGS (1)
  1. REBIF [Suspect]

REACTIONS (1)
  - CEREBRAL HAEMORRHAGE [None]
